FAERS Safety Report 5664960-3 (Version None)
Quarter: 2008Q1

REPORT INFORMATION
  Report Type: 
  Country: None (occurrence: None)
  Receive Date: 20080314
  Receipt Date: 20080307
  Transmission Date: 20080703
  Serious: Yes (Hospitalization, Other)
  Sender: FDA-Public Use
  Company Number: JP-ABBOTT-08P-087-0441429-00

PATIENT
  Age: 65 Year
  Sex: Male

DRUGS (13)
  1. KLARICID TABLETS [Suspect]
     Indication: PNEUMONIA
     Route: 048
     Dates: start: 20080130, end: 20080307
  2. AMLODIPINE BESYLATE [Suspect]
     Indication: HYPERTENSION
     Route: 048
     Dates: end: 20080305
  3. CARVEDILOL [Suspect]
     Indication: DRUG USE FOR UNKNOWN INDICATION
     Route: 048
  4. VALSARTAN [Suspect]
     Indication: DRUG USE FOR UNKNOWN INDICATION
     Route: 048
  5. ISOSORBIDE MONONITRATE [Concomitant]
     Indication: DRUG USE FOR UNKNOWN INDICATION
     Route: 048
  6. FUROSEMIDE [Concomitant]
     Indication: DRUG USE FOR UNKNOWN INDICATION
     Route: 048
  7. TRICHLORMETHIAZIDE [Concomitant]
     Indication: DRUG USE FOR UNKNOWN INDICATION
     Route: 048
  8. ATORVASTATIN CALCIUM HYDRATE [Concomitant]
     Indication: DRUG USE FOR UNKNOWN INDICATION
  9. ALLOPURINOL [Concomitant]
     Indication: DRUG USE FOR UNKNOWN INDICATION
  10. REBAMIPIDE [Concomitant]
     Indication: DRUG USE FOR UNKNOWN INDICATION
  11. FOLIC ACID [Concomitant]
     Indication: DRUG USE FOR UNKNOWN INDICATION
  12. QUAZEPAM [Concomitant]
     Indication: DRUG USE FOR UNKNOWN INDICATION
  13. UNSPECIFIED ANTITUMOR DRUGS [Concomitant]
     Indication: GASTROINTESTINAL CARCINOMA
     Route: 048

REACTIONS (5)
  - ANOREXIA [None]
  - BLOOD PRESSURE DECREASED [None]
  - DEHYDRATION [None]
  - GASTROINTESTINAL CARCINOMA [None]
  - NUTRITIONAL CONDITION ABNORMAL [None]
